FAERS Safety Report 6885356-2 (Version None)
Quarter: 2010Q3

REPORT INFORMATION
  Report Type: 
  Country: None (occurrence: None)
  Receive Date: 20100729
  Receipt Date: 20080229
  Transmission Date: 20110219
  Serious: No
  Sender: FDA-Public Use
  Company Number: US-PFIZER INC-2008003636

PATIENT
  Weight: 170 kg

DRUGS (4)
  1. CELEBREX [Suspect]
     Indication: OSTEOARTHRITIS
     Dates: start: 20050101
  2. ATENOLOL [Concomitant]
  3. ANTIHISTAMINES [Concomitant]
  4. CASCARA SAGRADA [Concomitant]

REACTIONS (2)
  - SKIN DEPIGMENTATION [None]
  - SKIN DISCOLOURATION [None]
